FAERS Safety Report 5824393-3 (Version None)
Quarter: 2008Q3

REPORT INFORMATION
  Report Type: 
  Country: None (occurrence: None)
  Receive Date: 20080728
  Receipt Date: 20080725
  Transmission Date: 20090109
  Serious: Yes (Other)
  Sender: FDA-Public Use
  Company Number: A0729431A

PATIENT
  Sex: Male

DRUGS (4)
  1. EPZICOM [Suspect]
     Indication: DRUG USE FOR UNKNOWN INDICATION
     Route: 048
  2. COMBIVIR [Suspect]
     Indication: HIV INFECTION
     Route: 065
  3. TRIZIVIR [Suspect]
     Indication: HIV INFECTION
     Route: 065
  4. EPIVIR [Suspect]
     Indication: HIV INFECTION
     Route: 065

REACTIONS (1)
  - MITOCHONDRIAL DNA DEPLETION [None]
